FAERS Safety Report 8395177-X (Version None)
Quarter: 2012Q2

REPORT INFORMATION
  Report Type: 
  Country: None (occurrence: None)
  Receive Date: 20120530
  Receipt Date: 20120519
  Transmission Date: 20120825
  Serious: Yes (Other)
  Sender: FDA-Public Use
  Company Number: JP-ASTRAZENECA-2012SE32291

PATIENT
  Age: 75 Year
  Sex: Female
  Weight: 75 kg

DRUGS (4)
  1. PROPOFOL [Suspect]
     Indication: SEDATION
     Dosage: DOSE UNKNOWN
     Route: 042
  2. BUPRENORPHINE HCL [Concomitant]
     Dosage: DOSE UNKNOWN
     Route: 065
  3. MAGNESIUM SULFATE HYDRATE [Concomitant]
     Dosage: DOSE UNKNOWN
     Route: 065
  4. THEOPHYLLINE [Concomitant]
     Dosage: DOSE UNKNOWN
     Route: 048

REACTIONS (1)
  - MYOPATHY [None]
